FAERS Safety Report 5538321-1 (Version None)
Quarter: 2007Q4

REPORT INFORMATION
  Report Type: 
  Country: None (occurrence: None)
  Receive Date: 20071205
  Receipt Date: 20071119
  Transmission Date: 20080405
  Serious: Yes (Hospitalization)
  Sender: FDA-Public Use
  Company Number: DSA_30920_2007

PATIENT
  Age: 44 Year
  Sex: Female

DRUGS (3)
  1. LORAZEPAM [Suspect]
     Dosage: NOT THE PRESCRIBED AMOUNT  ORAL
     Route: 048
     Dates: start: 19990615, end: 19990615
  2. ZYPREXA [Suspect]
     Indication: DEPRESSION
     Dosage: NOT THE PRESCRIBED AMOUNT  ORAL, 5-30 MG ORAL
     Route: 048
     Dates: start: 19990615, end: 19990615
  3. ZYPREXA [Suspect]
     Indication: DEPRESSION
     Dosage: NOT THE PRESCRIBED AMOUNT  ORAL, 5-30 MG ORAL
     Route: 048
     Dates: start: 19980401

REACTIONS (14)
  - BLOOD PRESSURE INCREASED [None]
  - CARBOXYHAEMOGLOBIN INCREASED [None]
  - COMA [None]
  - DRUG INEFFECTIVE [None]
  - DRUG SCREEN POSITIVE [None]
  - HALLUCINATION, AUDITORY [None]
  - INTENTIONAL OVERDOSE [None]
  - MAJOR DEPRESSION [None]
  - PSYCHOTIC DISORDER [None]
  - PUPILLARY REFLEX IMPAIRED [None]
  - RESPIRATORY FAILURE [None]
  - SCHIZOPHRENIA [None]
  - SUICIDE ATTEMPT [None]
  - UNRESPONSIVE TO STIMULI [None]
